FAERS Safety Report 18233134 (Version 1)
Quarter: 2020Q3

REPORT INFORMATION
  Report Type: Spontaneous
  Country: US (occurrence: US)
  Receive Date: 20200903
  Receipt Date: 20200903
  Transmission Date: 20201103
  Serious: Yes (Hospitalization)
  Sender: FDA-Public Use
  Company Number: None

PATIENT
  Sex: Female

DRUGS (27)
  1. CEVIMELINE. [Concomitant]
     Active Substance: CEVIMELINE
  2. LINEZOLID. [Concomitant]
     Active Substance: LINEZOLID
  3. METHOTREXATE. [Concomitant]
     Active Substance: METHOTREXATE
  4. FORTEO [Suspect]
     Active Substance: TERIPARATIDE
     Indication: OSTEOPOROSIS
     Dosage: ?          OTHER STRENGTH:600MCG/2.4ML;?
     Route: 048
     Dates: start: 20200318
  5. BACLOFEN. [Concomitant]
     Active Substance: BACLOFEN
  6. AMLODIPINE [Concomitant]
     Active Substance: AMLODIPINE BESYLATE
  7. ATROVASTATIN [Concomitant]
     Active Substance: ATORVASTATIN CALCIUM
  8. DOXYCYC MONO [Concomitant]
     Active Substance: DOXYCYCLINE
  9. HYDROCO/APAP [Concomitant]
     Active Substance: ACETAMINOPHEN\HYDROCODONE
  10. SERTRALINE [Concomitant]
     Active Substance: SERTRALINE HYDROCHLORIDE
  11. SMZ/TMP DZ [Concomitant]
  12. XARELTO [Concomitant]
     Active Substance: RIVAROXABAN
  13. CIPROFLOACN [Concomitant]
     Active Substance: CIPROFLOXACIN
  14. DICLOFENAC [Concomitant]
     Active Substance: DICLOFENAC
  15. MELOXICAM. [Concomitant]
     Active Substance: MELOXICAM
  16. MULTAQ [Concomitant]
     Active Substance: DRONEDARONE
  17. ERYTHROMYCIN OIN [Concomitant]
  18. FUROSEMIDE. [Concomitant]
     Active Substance: FUROSEMIDE
  19. APAP/CODEINE [Concomitant]
     Active Substance: ACETAMINOPHEN\CODEINE PHOSPHATE
  20. MINOCYCLINE [Concomitant]
     Active Substance: MINOCYCLINE HYDROCHLORIDE
  21. PREGABLIN [Concomitant]
     Active Substance: PREGABALIN
  22. TOBRADEX [Concomitant]
     Active Substance: DEXAMETHASONE\TOBRAMYCIN
  23. FOLIC ACID. [Concomitant]
     Active Substance: FOLIC ACID
  24. CLINDAMYCIN. [Concomitant]
     Active Substance: CLINDAMYCIN
  25. DULOXETINE. [Concomitant]
     Active Substance: DULOXETINE
  26. OMEPRAZOLE. [Concomitant]
     Active Substance: OMEPRAZOLE
  27. PREDNISONE. [Concomitant]
     Active Substance: PREDNISONE

REACTIONS (2)
  - Fracture [None]
  - Urinary tract infection [None]
